FAERS Safety Report 9519264 (Version 2)
Quarter: 2014Q1

REPORT INFORMATION
  Report Type: Spontaneous
  Country: US (occurrence: None)
  Receive Date: 20130305
  Receipt Date: 20140306
  Transmission Date: 20141002
  Serious: Yes (Other)
  Sender: FDA-Public Use
  Company Number: 163-21880-12103671

PATIENT
  Sex: Female
  Weight: 64.4 kg

DRUGS (7)
  1. REVLIMID (LENALIDOMIDE) (CAPSULES) [Suspect]
     Indication: PLASMA CELL MYELOMA
     Dosage: 25 MG,  21 IN 28 D,   PO
     Route: 048
     Dates: start: 20100518
  2. ENOXAPARIN SODIUM (HEPARIN-FRACTION, SODIUM SALT) [Concomitant]
  3. SYNTHROID (LEVOTHYROXINE SODIUM) [Concomitant]
  4. ASPIRIN (ACETYLSALICYLIC ACID) [Concomitant]
  5. ECOTRIN (ACETYLSALICYLIC ACID) [Suspect]
  6. PANTOPRAZOLE SODIUM (PANTOPRAZOLE SODIUM) [Concomitant]
  7. PREMARIN (ESTROGENS CONJUGATED) [Concomitant]

REACTIONS (4)
  - Fatigue [None]
  - Anxiety [None]
  - Vaginal disorder [None]
  - Fall [None]
